FAERS Safety Report 17750640 (Version 1)
Quarter: 2020Q2

REPORT INFORMATION
  Report Type: Spontaneous
  Country: FR (occurrence: FR)
  Receive Date: 20200506
  Receipt Date: 20200506
  Transmission Date: 20200714
  Serious: Yes (Hospitalization)
  Sender: FDA-Public Use
  Company Number: FR-TEVA-2020-FR-1230770

PATIENT
  Age: 64 Year
  Sex: Male

DRUGS (10)
  1. METFORMINE [Concomitant]
     Active Substance: METFORMIN HYDROCHLORIDE
     Indication: PRODUCT USED FOR UNKNOWN INDICATION
     Dosage: 850MG
     Route: 048
  2. BISOPROLOL (FUMARATE ACIDE DE) [Concomitant]
     Active Substance: BISOPROLOL FUMARATE
     Indication: MYOCARDIAL ISCHAEMIA
     Dosage: 1.25MG
     Route: 048
  3. ALFUZOSINE (CHLORHYDRATE D^) [Suspect]
     Active Substance: ALFUZOSIN HYDROCHLORIDE
     Indication: PRODUCT USED FOR UNKNOWN INDICATION
     Dosage: 10MG
     Route: 048
  4. OMEPRAZOLE. [Suspect]
     Active Substance: OMEPRAZOLE
     Indication: PROPHYLAXIS AGAINST GASTROINTESTINAL ULCER
     Route: 048
     Dates: start: 20200306, end: 20200308
  5. VELMETIA 50 MG/1000 MG, COMPRIME PELLICULE [Suspect]
     Active Substance: METFORMIN HYDROCHLORIDE\SITAGLIPTIN PHOSPHATE
     Indication: DIABETES MELLITUS
     Dosage: 2 DOSAGE FORMS
     Route: 048
     Dates: end: 20200308
  6. PRAVASTATINE SODIQUE [Concomitant]
     Active Substance: PRAVASTATIN SODIUM
     Indication: PRODUCT USED FOR UNKNOWN INDICATION
     Dosage: 40MG
     Route: 048
  7. RAMIPRIL. [Suspect]
     Active Substance: RAMIPRIL
     Indication: MYOCARDIAL ISCHAEMIA
     Dosage: 10MG
     Route: 048
     Dates: end: 20200308
  8. KETOPROFENE [Suspect]
     Active Substance: KETOPROFEN
     Indication: BACK PAIN
     Route: 048
     Dates: start: 20200306, end: 20200308
  9. XARELTO [Concomitant]
     Active Substance: RIVAROXABAN
     Indication: PRODUCT USED FOR UNKNOWN INDICATION
     Dosage: 20MG
     Route: 048
  10. INSPRA [Suspect]
     Active Substance: EPLERENONE
     Indication: MYOCARDIAL ISCHAEMIA
     Dosage: 25MG
     Route: 048
     Dates: end: 20200308

REACTIONS (1)
  - Acute kidney injury [Recovered/Resolved]

NARRATIVE: CASE EVENT DATE: 20200308
